FAERS Safety Report 10242121 (Version 3)
Quarter: 2015Q1

REPORT INFORMATION
  Report Type: Spontaneous
  Country: US (occurrence: US)
  Receive Date: 20140617
  Receipt Date: 20150123
  Transmission Date: 20150720
  Serious: Yes (Other)
  Sender: FDA-Public Use
  Company Number: US-BAYER-2014-087854

PATIENT
  Age: 42 Year
  Sex: Female
  Weight: 62.59 kg

DRUGS (3)
  1. MIRENA [Suspect]
     Active Substance: LEVONORGESTREL
     Indication: CONTRACEPTION
     Dosage: 20 ?G/D, CONT
     Route: 015
     Dates: start: 20131111, end: 20140306
  2. MIRENA [Suspect]
     Active Substance: LEVONORGESTREL
     Indication: MENORRHAGIA
  3. MICROGESTIN [Concomitant]
     Active Substance: ETHINYL ESTRADIOL\NORETHINDRONE ACETATE
     Indication: ORAL CONTRACEPTION
     Dosage: UNK

REACTIONS (16)
  - Abdominal distension [Recovered/Resolved]
  - Vaginal discharge [None]
  - Discomfort [None]
  - Unevaluable event [None]
  - Abdominal pain lower [Recovered/Resolved]
  - Menometrorrhagia [None]
  - Weight increased [Recovering/Resolving]
  - Acne [Recovering/Resolving]
  - Mood swings [None]
  - Nervousness [None]
  - Medication error [None]
  - Anxiety [None]
  - Alopecia [None]
  - Depression [None]
  - Loss of libido [None]
  - Stress [Recovering/Resolving]
